FAERS Safety Report 10230448 (Version 2)
Quarter: 2014Q2

REPORT INFORMATION
  Report Type: Spontaneous
  Country: US (occurrence: US)
  Receive Date: 20140611
  Receipt Date: 20140611
  Transmission Date: 20141212
  Serious: No
  Sender: FDA-Public Use
  Company Number: US-INCYTE CORPORATION-2014IN000561

PATIENT
  Sex: Male
  Weight: 63.49 kg

DRUGS (3)
  1. JAKAFI [Suspect]
     Indication: MYELOFIBROSIS
     Dosage: 15 MG, BID
     Route: 048
     Dates: start: 201310
  2. CLARITIN                            /00917501/ [Concomitant]
  3. FUROSEMIDE [Concomitant]
     Dosage: PRN

REACTIONS (1)
  - Influenza [Unknown]
